FAERS Safety Report 10086655 (Version 1)
Quarter: 2014Q2

REPORT INFORMATION
  Report Type: Spontaneous
  Country: US (occurrence: None)
  Receive Date: 20140417
  Receipt Date: 20140417
  Transmission Date: 20141212
  Serious: No
  Sender: FDA-Public Use
  Company Number: None

PATIENT
  Age: 30 Year
  Sex: Female
  Weight: 62.14 kg

DRUGS (2)
  1. VELPHORO [Suspect]
     Indication: RENAL DISORDER
     Dosage: 1-2 PILLS TID ORAL
     Route: 048
     Dates: start: 20140407, end: 20140416
  2. VELPHORO [Suspect]
     Indication: BLOOD PHOSPHORUS INCREASED
     Dosage: 1-2 PILLS TID ORAL
     Route: 048
     Dates: start: 20140407, end: 20140416

REACTIONS (5)
  - Faeces discoloured [None]
  - Nausea [None]
  - Vomiting [None]
  - Abdominal discomfort [None]
  - Stomatitis [None]
